FAERS Safety Report 6030454-9 (Version None)
Quarter: 2009Q1

REPORT INFORMATION
  Report Type: 
  Country: None (occurrence: None)
  Receive Date: 20090105
  Receipt Date: 20090105
  Transmission Date: 20090719
  Serious: Yes (Death, Hospitalization)
  Sender: FDA-Public Use
  Company Number: None

PATIENT
  Sex: Male

DRUGS (1)
  1. HEPARIN [Suspect]

REACTIONS (7)
  - ANAPHYLACTIC SHOCK [None]
  - BLOOD PRESSURE DECREASED [None]
  - BRAIN DEATH [None]
  - BRAIN HERNIATION [None]
  - BRAIN OEDEMA [None]
  - DRUG HYPERSENSITIVITY [None]
  - LOSS OF CONSCIOUSNESS [None]
